FAERS Safety Report 4394547-4 (Version None)
Quarter: 2004Q3

REPORT INFORMATION
  Report Type: 
  Country: None (occurrence: None)
  Receive Date: 20040707
  Receipt Date: 20040622
  Transmission Date: 20050211
  Serious: Yes (Hospitalization)
  Sender: FDA-Public Use
  Company Number: 198980

PATIENT
  Age: 35 Year
  Sex: Female
  Weight: 45.3597 kg

DRUGS (6)
  1. AVONEX [Suspect]
     Indication: MULTIPLE SCLEROSIS
     Dosage: 30 MCG QW; IM
     Route: 030
     Dates: start: 20000101, end: 20010101
  2. AVONEX [Suspect]
     Indication: MULTIPLE SCLEROSIS
     Dosage: 30 MCG, QW; IM
     Route: 030
     Dates: start: 20020801, end: 20030301
  3. AVONEX [Suspect]
     Indication: MULTIPLE SCLEROSIS
     Dosage: 30  MCG QW; IM
     Route: 030
     Dates: start: 20030901
  4. BACLOFEN [Concomitant]
  5. COPAXONE [Concomitant]
  6. ALEVE [Concomitant]

REACTIONS (14)
  - BLOOD POTASSIUM DECREASED [None]
  - CONDITION AGGRAVATED [None]
  - FEELING ABNORMAL [None]
  - HYPOTENSION [None]
  - INFLUENZA LIKE ILLNESS [None]
  - LOSS OF CONSCIOUSNESS [None]
  - MENINGITIS [None]
  - MULTIPLE SCLEROSIS [None]
  - NEUTROPENIA [None]
  - OSTEOPENIA [None]
  - PAIN [None]
  - SEPSIS [None]
  - VOMITING [None]
  - WHITE BLOOD CELL COUNT DECREASED [None]
